FAERS Safety Report 25918228 (Version 2)
Quarter: 2025Q4

REPORT INFORMATION
  Report Type: Spontaneous
  Country: US (occurrence: US)
  Receive Date: 20251014
  Receipt Date: 20251029
  Transmission Date: 20260118
  Serious: Yes (Other)
  Sender: BAYER HEALTHCARE PHARMACEUTICALS INC.
  Company Number: US-BAYER-2025A132881

PATIENT
  Age: 25 Year
  Sex: Female

DRUGS (1)
  1. MIRENA [Suspect]
     Active Substance: LEVONORGESTREL
     Indication: Intrauterine contraception
     Dosage: 20?G/DAY
     Route: 015
     Dates: start: 20250228, end: 202504

REACTIONS (6)
  - Pregnancy with contraceptive device [Recovered/Resolved]
  - Haemorrhage in pregnancy [None]
  - Device expulsion [Recovered/Resolved]
  - Pelvic pain [None]
  - Contraindicated device used [None]
  - Medical device monitoring error [None]

NARRATIVE: CASE EVENT DATE: 20250101
